FAERS Safety Report 4571637-4 (Version None)
Quarter: 2005Q1

REPORT INFORMATION
  Report Type: 
  Country: None (occurrence: None)
  Receive Date: 20050203
  Receipt Date: 20050203
  Transmission Date: 20050727
  Serious: Yes (Other)
  Sender: FDA-Public Use
  Company Number: None

PATIENT
  Sex: Female
  Weight: 73.9363 kg

DRUGS (4)
  1. REMERON [Suspect]
     Indication: AFFECTIVE DISORDER
     Dosage: 15 MG QD
  2. REMERON [Suspect]
     Indication: AGGRESSION
     Dosage: 15 MG QD
  3. REMERON [Suspect]
     Indication: MANIA
     Dosage: 15 MG QD
  4. REMERON [Suspect]
     Indication: POST-TRAUMATIC STRESS DISORDER
     Dosage: 15 MG QD

REACTIONS (1)
  - PHARMACEUTICAL PRODUCT COMPLAINT [None]
